FAERS Safety Report 6029841-4 (Version None)
Quarter: 2009Q1

REPORT INFORMATION
  Report Type: 
  Country: None (occurrence: None)
  Receive Date: 20090106
  Receipt Date: 20090106
  Transmission Date: 20090719
  Serious: No
  Sender: FDA-Public Use
  Company Number: None

PATIENT
  Sex: Female

DRUGS (3)
  1. FENTANYL-100 [Suspect]
     Indication: ARTHRALGIA
     Dosage: 6 MONTHS AGO - USED FOR 3 DAYS
  2. FENTANYL-100 [Suspect]
     Indication: BACK PAIN
     Dosage: 6 MONTHS AGO - USED FOR 3 DAYS
  3. FENTANYL-100 [Suspect]
     Indication: BURSITIS
     Dosage: 6 MONTHS AGO - USED FOR 3 DAYS

REACTIONS (5)
  - DRUG INEFFECTIVE [None]
  - NAUSEA [None]
  - PAIN [None]
  - THERAPEUTIC RESPONSE UNEXPECTED WITH DRUG SUBSTITUTION [None]
  - TREMOR [None]
